FAERS Safety Report 13254466 (Version 3)
Quarter: 2017Q3

REPORT INFORMATION
  Report Type: Spontaneous
  Country: US (occurrence: US)
  Receive Date: 20170221
  Receipt Date: 20170803
  Transmission Date: 20171127
  Serious: Yes (Death, Hospitalization, Other)
  Sender: FDA-Public Use
  Company Number: US-BRISTOL-MYERS SQUIBB COMPANY-BMS-2017-012882

PATIENT
  Age: 49 Year
  Sex: Female

DRUGS (1)
  1. NIVOLUMAB [Suspect]
     Active Substance: NIVOLUMAB
     Indication: HODGKIN^S DISEASE
     Dosage: 3 MG/KG, UNK
     Route: 042
     Dates: start: 20170130

REACTIONS (7)
  - Pneumonia [Fatal]
  - Colitis [Recovered/Resolved]
  - Cardiac failure congestive [Unknown]
  - Pleural effusion [Unknown]
  - Splenomegaly [Unknown]
  - Malignant neoplasm progression [Unknown]
  - Muscular weakness [Unknown]

NARRATIVE: CASE EVENT DATE: 20170130
